FAERS Safety Report 8013032-1 (Version None)
Quarter: 2011Q4

REPORT INFORMATION
  Report Type: 
  Country: None (occurrence: None)
  Receive Date: 20111223
  Receipt Date: 20111223
  Transmission Date: 20120403
  Serious: Yes (Hospitalization)
  Sender: FDA-Public Use
  Company Number: None

PATIENT
  Age: 81 Year
  Sex: Male
  Weight: 82.5 kg

DRUGS (1)
  1. MEMANTINE [Suspect]
     Indication: MEMORY IMPAIRMENT
     Dosage: 10 MG BID PO
     Route: 048
     Dates: start: 20111202, end: 20111215

REACTIONS (3)
  - AMNESIA [None]
  - CONFUSIONAL STATE [None]
  - HALLUCINATION [None]
